FAERS Safety Report 5320898-2 (Version None)
Quarter: 2007Q2

REPORT INFORMATION
  Report Type: 
  Country: None (occurrence: None)
  Receive Date: 20070504
  Receipt Date: 20070424
  Transmission Date: 20071010
  Serious: Yes (Other)
  Sender: FDA-Public Use
  Company Number: T200700460

PATIENT
  Age: 66 Year
  Sex: Male

DRUGS (2)
  1. OPTIRAY 160 [Suspect]
     Indication: COMPUTERISED TOMOGRAM HEAD
     Dosage: 75 ML, SINGLE INTRAVENOUS
     Route: 042
     Dates: start: 20070403, end: 20070403
  2. AMLODIPINE BESYLATE [Concomitant]

REACTIONS (1)
  - ANAPHYLACTIC SHOCK [None]
